FAERS Safety Report 19981071 (Version 1)
Quarter: 2021Q4

REPORT INFORMATION
  Report Type: Spontaneous
  Country: JP (occurrence: JP)
  Receive Date: 20211021
  Receipt Date: 20211021
  Transmission Date: 20220303
  Serious: Yes (Death, Hospitalization, Other)
  Sender: FDA-Public Use
  Company Number: JP-EISAI MEDICAL RESEARCH-EC-2021-100402

PATIENT

DRUGS (1)
  1. ZONISAMIDE [Suspect]
     Active Substance: ZONISAMIDE
     Indication: Parkinson^s disease
     Dosage: DOSE AND FREQUENCY UNKNOWN, ORODISPERSIBLE TABLET  (TRERIEF)
     Route: 048

REACTIONS (1)
  - Pneumonia aspiration [Fatal]
